FAERS Safety Report 12846034 (Version 1)
Quarter: 2016Q4

REPORT INFORMATION
  Report Type: Spontaneous
  Country: US (occurrence: US)
  Receive Date: 20161014
  Receipt Date: 20161014
  Transmission Date: 20170207
  Serious: No
  Sender: FDA-Public Use
  Company Number: US-LUPIN PHARMACEUTICALS INC.-2015-03661

PATIENT
  Sex: Male

DRUGS (1)
  1. LISINOPRIL 5 MG [Suspect]
     Active Substance: LISINOPRIL
     Indication: PRODUCT USED FOR UNKNOWN INDICATION
     Route: 065

REACTIONS (4)
  - Middle insomnia [Unknown]
  - Discomfort [Unknown]
  - Extrasystoles [Unknown]
  - Feeling abnormal [Unknown]
